FAERS Safety Report 9109249 (Version 1)
Quarter: 2013Q1

REPORT INFORMATION
  Report Type: Spontaneous
  Country: US (occurrence: US)
  Receive Date: 20130222
  Receipt Date: 20130222
  Transmission Date: 20140127
  Serious: No
  Sender: FDA-Public Use
  Company Number: US-ASTRAZENECA-2013SE10544

PATIENT
  Sex: Male

DRUGS (2)
  1. SYMBICORT [Suspect]
     Dosage: 320 MCG,TWO PUFFS, BID
     Route: 055
     Dates: start: 20120904
  2. SYMBICORT [Suspect]
     Route: 055
     Dates: start: 20120908

REACTIONS (1)
  - Dysgeusia [Unknown]
